FAERS Safety Report 21514790 (Version 1)
Quarter: 2022Q4

REPORT INFORMATION
  Report Type: Report from Study
  Country: US (occurrence: US)
  Receive Date: 20221027
  Receipt Date: 20221027
  Transmission Date: 20230113
  Serious: No
  Sender: FDA-Public Use
  Company Number: US-ABBVIE-4174061

PATIENT
  Sex: Male

DRUGS (5)
  1. IMBRUVICA [Suspect]
     Active Substance: IBRUTINIB
     Indication: Product used for unknown indication
     Route: 048
  2. LOVASTATIN [Concomitant]
     Active Substance: LOVASTATIN
     Indication: Product used for unknown indication
  3. ALLOPURINOL [Concomitant]
     Active Substance: ALLOPURINOL
     Indication: Product used for unknown indication
  4. FAMVIR [Concomitant]
     Active Substance: FAMCICLOVIR
     Indication: Product used for unknown indication
  5. DAPSONE [Concomitant]
     Active Substance: DAPSONE
     Indication: Product used for unknown indication

REACTIONS (1)
  - Skin ulcer [Recovering/Resolving]
